FAERS Safety Report 17439006 (Version 1)
Quarter: 2020Q1

REPORT INFORMATION
  Report Type: Spontaneous
  Country: RO (occurrence: RO)
  Receive Date: 20200220
  Receipt Date: 20200220
  Transmission Date: 20200409
  Serious: Yes (Other)
  Sender: FDA-Public Use
  Company Number: RO-SUN PHARMACEUTICAL INDUSTRIES LTD-2020RR-237346

PATIENT
  Age: 83 Year
  Sex: Male

DRUGS (3)
  1. GABAPENTIN. [Suspect]
     Active Substance: GABAPENTIN
     Indication: ANTIINFLAMMATORY THERAPY
     Dosage: UNK
     Route: 065
  2. PREDNISONE. [Suspect]
     Active Substance: PREDNISONE
     Indication: EAR INFECTION
     Dosage: 5 MILLIGRAM
     Route: 048
  3. PREDNISONE. [Suspect]
     Active Substance: PREDNISONE
     Dosage: 0.75 MILLIGRAM/KILOGRAM, DAILY
     Route: 048

REACTIONS (3)
  - Myopathy [Recovered/Resolved]
  - Drug ineffective [Unknown]
  - Steroid diabetes [Recovered/Resolved]
